FAERS Safety Report 4414742-5 (Version None)
Quarter: 2004Q3

REPORT INFORMATION
  Report Type: 
  Country: None (occurrence: None)
  Receive Date: 20040804
  Receipt Date: 20030807
  Transmission Date: 20050211
  Serious: No
  Sender: FDA-Public Use
  Company Number: US-BRISTOL-MYERS SQUIBB COMPANY-12349916

PATIENT
  Sex: Female
  Weight: 84 kg

DRUGS (1)
  1. GLUCOVANCE [Suspect]
     Indication: DIABETES MELLITUS
     Dates: start: 20030201, end: 20030805

REACTIONS (1)
  - DIABETES MELLITUS INADEQUATE CONTROL [None]
